FAERS Safety Report 6221164-3 (Version None)
Quarter: 2009Q2

REPORT INFORMATION
  Report Type: 
  Country: None (occurrence: None)
  Receive Date: 20090608
  Receipt Date: 20090526
  Transmission Date: 20091009
  Serious: Yes (Hospitalization)
  Sender: FDA-Public Use
  Company Number: 1000006616

PATIENT
  Sex: Female

DRUGS (2)
  1. ESCITALOPRAM [Suspect]
     Dates: start: 20090101
  2. BENZODIAZEPINE [Concomitant]

REACTIONS (1)
  - ANGLE CLOSURE GLAUCOMA [None]
